FAERS Safety Report 17323306 (Version 1)
Quarter: 2020Q1

REPORT INFORMATION
  Report Type: Spontaneous
  Country: US (occurrence: US)
  Receive Date: 20200108
  Receipt Date: 20200108
  Transmission Date: 20200409
  Serious: Yes (Hospitalization, Other)
  Sender: FDA-Public Use
  Company Number: None

PATIENT
  Age: 70 Year
  Sex: Male
  Weight: 147.42 kg

DRUGS (3)
  1. AZTREONAM (AZTREONAM 2GM/VIL INJ) [Suspect]
     Active Substance: AZTREONAM
     Indication: GOUT
     Route: 042
     Dates: start: 20191112, end: 20191116
  2. AZTREONAM (AZTREONAM 2GM/VIL INJ) [Suspect]
     Active Substance: AZTREONAM
     Indication: INFECTION
     Route: 042
     Dates: start: 20191112, end: 20191116
  3. VANCOMYCIN (VANC O MYCIN HCL 1.25GM/VIAL INJ) [Suspect]
     Active Substance: VANCOMYCIN HYDROCHLORIDE
     Route: 042
     Dates: start: 20191112, end: 20191112

REACTIONS (4)
  - Nephropathy toxic [None]
  - Renal tubular necrosis [None]
  - Acute kidney injury [None]
  - Blood urea increased [None]

NARRATIVE: CASE EVENT DATE: 20191115
